FAERS Safety Report 14519838 (Version 1)
Quarter: 2018Q1

REPORT INFORMATION
  Report Type: Spontaneous
  Country: IT (occurrence: IT)
  Receive Date: 20180212
  Receipt Date: 20180212
  Transmission Date: 20180509
  Serious: Yes (Hospitalization)
  Sender: FDA-Public Use
  Company Number: IT-PFIZER INC-2017095795

PATIENT
  Age: 84 Year
  Sex: Female

DRUGS (2)
  1. GIANT [Suspect]
     Active Substance: AMLODIPINE BESYLATE\OLMESARTAN MEDOXOMIL
     Indication: HYPERTENSION
     Dosage: 80 DF, UNK
     Route: 048
     Dates: start: 20160829, end: 20160829
  2. TAVOR (LORAZEPAM) [Suspect]
     Active Substance: LORAZEPAM
     Dosage: 20 DF, UNK
     Route: 048
     Dates: start: 20160829, end: 20160829

REACTIONS (3)
  - Drug abuse [Unknown]
  - Sopor [Unknown]
  - Hypotension [Unknown]

NARRATIVE: CASE EVENT DATE: 20160830
